FAERS Safety Report 16887098 (Version 1)
Quarter: 2019Q4

REPORT INFORMATION
  Report Type: Spontaneous
  Country: US (occurrence: US)
  Receive Date: 20191004
  Receipt Date: 20191004
  Transmission Date: 20200122
  Serious: Yes (Death)
  Sender: FDA-Public Use
  Company Number: US-TEVA-2019-US-1118525

PATIENT

DRUGS (2)
  1. TREXALL [Suspect]
     Active Substance: METHOTREXATE SODIUM
     Route: 065
  2. METOLAZONE. [Suspect]
     Active Substance: METOLAZONE
     Route: 065

REACTIONS (4)
  - Discomfort [Unknown]
  - Wrong product administered [Unknown]
  - Death [Fatal]
  - Pain [Unknown]
